FAERS Safety Report 7742630-5 (Version None)
Quarter: 2011Q3

REPORT INFORMATION
  Report Type: 
  Country: None (occurrence: None)
  Receive Date: 20110831
  Receipt Date: 20110816
  Transmission Date: 20111222
  Serious: Yes (Life-Threatening, Hospitalization)
  Sender: FDA-Public Use
  Company Number: 2011US005795

PATIENT
  Age: 68 Year
  Sex: Male
  Weight: 81.4 kg

DRUGS (25)
  1. NAVELBINE [Concomitant]
  2. PLAVIX [Concomitant]
  3. ZOLOFT [Concomitant]
  4. ALBUTEROL SULFATE AUTOHALER [Concomitant]
  5. AMIODARONE (AMIODARONE HYDROCHLORIDE) [Concomitant]
  6. LIPITOR [Concomitant]
  7. DULCOLAX [Concomitant]
  8. ALOXI [Suspect]
     Indication: PROPHYLAXIS OF NAUSEA AND VOMITING
     Dosage: 0.25 MG, INTRAVENOUS
     Route: 042
     Dates: start: 20110301, end: 20110807
  9. BENADRYL [Concomitant]
  10. PREDNISONE [Concomitant]
  11. FOLIC ACID [Concomitant]
  12. DECADRON [Concomitant]
  13. ASPIRIN [Concomitant]
  14. SPIRIVA [Concomitant]
  15. MULTIVITAMIN [Concomitant]
  16. CARBOPLATIN [Concomitant]
  17. PROTONIX [Concomitant]
  18. FLOMAX [Concomitant]
  19. ADVAIR HFA [Concomitant]
  20. RESTORIL [Concomitant]
  21. NITROGLYCERIN (GLYCERYL TRINTRATE) [Concomitant]
  22. ATIVAN [Concomitant]
  23. TAXOL [Concomitant]
  24. ETOPOSIDE [Concomitant]
  25. MAALOX (MAGNESIUM HYDROXIDE) [Concomitant]

REACTIONS (8)
  - CARDIAC ARREST [None]
  - PULSELESS ELECTRICAL ACTIVITY [None]
  - HAEMOGLOBIN DECREASED [None]
  - PLATELET COUNT DECREASED [None]
  - DEVICE RELATED INFECTION [None]
  - VENTRICULAR FIBRILLATION [None]
  - ABSCESS [None]
  - STAPHYLOCOCCUS TEST POSITIVE [None]
